FAERS Safety Report 4594996-5 (Version None)
Quarter: 2005Q1

REPORT INFORMATION
  Report Type: 
  Country: None (occurrence: None)
  Receive Date: 20050224
  Receipt Date: 20031106
  Transmission Date: 20050727
  Serious: Yes (Hospitalization)
  Sender: FDA-Public Use
  Company Number: GXKR2003DE00616

PATIENT
  Age: 14 Year
  Sex: Male
  Weight: 73.5 kg

DRUGS (1)
  1. AMOXICILLIN AND CLAVULANATE POTASSIUM [Suspect]
     Indication: ACUTE TONSILLITIS

REACTIONS (7)
  - ANOREXIA [None]
  - CHOLESTASIS [None]
  - DRY SKIN [None]
  - EXANTHEM [None]
  - HEPATOMEGALY [None]
  - MEDICATION ERROR [None]
  - PRURITUS [None]
